FAERS Safety Report 20031062 (Version 1)
Quarter: 2021Q4

REPORT INFORMATION
  Report Type: Spontaneous
  Country: US (occurrence: US)
  Receive Date: 20211103
  Receipt Date: 20211103
  Transmission Date: 20220304
  Serious: Yes (Other)
  Sender: FDA-Public Use
  Company Number: US-MMM-7LEPXNJF

PATIENT
  Age: 27 Year
  Sex: Male

DRUGS (3)
  1. VRAYLAR [Suspect]
     Active Substance: CARIPRAZINE
     Indication: Bipolar I disorder
     Dosage: 3 MG, QAM
     Route: 048
     Dates: start: 20201123, end: 20201125
  2. VRAYLAR [Suspect]
     Active Substance: CARIPRAZINE
     Dosage: 1.5 MG, QD
     Route: 048
     Dates: start: 20201110, end: 20201122
  3. COLCHICINE [Concomitant]
     Active Substance: COLCHICINE
     Indication: Gout
     Dosage: 0.6 MG
     Dates: start: 20201111, end: 20201112

REACTIONS (2)
  - Dyskinesia [Recovered/Resolved]
  - Swelling face [Recovered/Resolved]

NARRATIVE: CASE EVENT DATE: 20201125
